FAERS Safety Report 15635667 (Version 1)
Quarter: 2018Q4

REPORT INFORMATION
  Report Type: Spontaneous
  Country: FR (occurrence: FR)
  Receive Date: 20181120
  Receipt Date: 20181120
  Transmission Date: 20190205
  Serious: Yes (Other)
  Sender: FDA-Public Use
  Company Number: FR-AUROBINDO-AUR-APL-2018-055347

PATIENT
  Age: 78 Year
  Sex: Male
  Weight: 61 kg

DRUGS (7)
  1. EFUDIX [Concomitant]
     Active Substance: FLUOROURACIL
     Indication: HYPERKERATOSIS
     Dosage: NON RENSEIGN?E ()
     Route: 003
     Dates: start: 20180411, end: 20180520
  2. PRAVASTATIN. [Suspect]
     Active Substance: PRAVASTATIN
     Indication: DYSLIPIDAEMIA
     Dosage: NON RENSEIGN?E ()
     Route: 048
     Dates: end: 20180911
  3. STAGID [Suspect]
     Active Substance: METFORMIN PAMOATE
     Indication: DIABETES MELLITUS
     Dosage: NON RENSEIGN?E ()
     Route: 048
  4. PLAVIX [Suspect]
     Active Substance: CLOPIDOGREL BISULFATE
     Indication: CORONARY ARTERY DISEASE
     Dosage: NON RENSEIGN?E ()
     Route: 048
  5. LEVOTHYROX [Suspect]
     Active Substance: LEVOTHYROXINE
     Indication: HYPOTHYROIDISM
     Dosage: NON RENSEIGN?E ()
     Route: 048
  6. CELIPROLOL [Suspect]
     Active Substance: CELIPROLOL
     Indication: CORONARY ARTERY DISEASE
     Dosage: NON RENSEIGN?E ()
     Route: 048
  7. EZETROL [Suspect]
     Active Substance: EZETIMIBE
     Indication: DYSLIPIDAEMIA
     Dosage: NON RENSEIGN?E ()
     Route: 048

REACTIONS (2)
  - Interstitial lung disease [Recovering/Resolving]
  - Cough [Recovering/Resolving]

NARRATIVE: CASE EVENT DATE: 201805
